FAERS Safety Report 4630652-2 (Version None)
Quarter: 2005Q2

REPORT INFORMATION
  Report Type: 
  Country: None (occurrence: None)
  Receive Date: 20050408
  Receipt Date: 20050228
  Transmission Date: 20051028
  Serious: Yes (Other)
  Sender: FDA-Public Use
  Company Number: GB-SANOFI-SYNTHELABO-A01200501224

PATIENT
  Sex: Male

DRUGS (3)
  1. STILNOCT [Suspect]
     Indication: DRUG USE FOR UNKNOWN INDICATION
     Dosage: HIGH DOSES
     Route: 048
     Dates: start: 19980101
  2. FLUOXETINE [Concomitant]
     Indication: DRUG USE FOR UNKNOWN INDICATION
     Dosage: HIGH DOSES
     Route: 065
  3. CITALOPRAM HYDROBROMIDE [Concomitant]
     Indication: DRUG USE FOR UNKNOWN INDICATION
     Dosage: HIGH DOSE
     Route: 065

REACTIONS (8)
  - AMNESIA [None]
  - AUTOMATISM [None]
  - BLOOD ALCOHOL INCREASED [None]
  - DRUG ABUSER [None]
  - HALLUCINATION, VISUAL [None]
  - INTENTIONAL MISUSE [None]
  - PSYCHOTIC DISORDER [None]
  - ROAD TRAFFIC ACCIDENT [None]
